FAERS Safety Report 7748751 (Version 5)
Quarter: 2013Q3

REPORT INFORMATION
  Report Type: Spontaneous
  Country: PL (occurrence: None)
  Receive Date: 20101209
  Receipt Date: 20130705
  Transmission Date: 20140515
  Serious: Yes (Hospitalization)
  Sender: FDA-Public Use
  Company Number: PL-021432

PATIENT
  Age: 73 Year
  Sex: Male
  Weight: 69 kg

DRUGS (11)
  1. CHLORAMBUCIL [Suspect]
     Indication: CHRONIC LYMPHOCYTIC LEUKAEMIA
     Dosage: 10 MG/M2 DAYS 1-7 EVERY 28 DAYS ORAL
     Route: 048
     Dates: start: 20100512
  2. OFATUMUMAB [Suspect]
     Indication: CHRONIC LYMPHOCYTIC LEUKAEMIA
     Dosage: 300 MG, DAY 1, INTRAVENOUS
     Route: 042
     Dates: start: 20100512
  3. MAGNESIUM SULFURICUM (MAGNESIUM SULFATE) [Concomitant]
  4. COMPOUND ELECTROLYTE SOLUTION (ELECTROLYTES) [Concomitant]
  5. SODIUM CHLORIDE [Concomitant]
  6. NIVALIN GALANTAMINE [Concomitant]
  7. VITAMIN B1 (THIAMINE (VIT B1)) [Concomitant]
  8. VITAMIN B12 (CYANOCOBALAMIN) [Concomitant]
  9. MILGAMMA N (MULTIVITAMINS, COMBINATIONS) [Concomitant]
  10. CIPRONEX (CIPROFLOXACIN) [Concomitant]
  11. UNKNOWN [Concomitant]

REACTIONS (7)
  - Ophthalmic herpes zoster [None]
  - Balance disorder [None]
  - Deafness unilateral [None]
  - Pyrexia [None]
  - Vertigo labyrinthine [None]
  - Herpes simplex otitis externa [None]
  - Facial paresis [None]
